FAERS Safety Report 24035366 (Version 1)
Quarter: 2024Q3

REPORT INFORMATION
  Report Type: Spontaneous
  Country: CN (occurrence: CN)
  Receive Date: 20240701
  Receipt Date: 20240701
  Transmission Date: 20241017
  Serious: Yes (Life-Threatening, Other)
  Sender: BAYER
  Company Number: CN-BAYER-2024A093751

PATIENT
  Age: 75 Year
  Sex: Female
  Weight: 77 kg

DRUGS (2)
  1. ULTRAVIST [Suspect]
     Active Substance: IOPROMIDE
     Indication: Computerised tomogram thorax
     Dosage: 70 ML, ONCE
     Route: 042
     Dates: start: 20240527, end: 20240527
  2. ULTRAVIST [Suspect]
     Active Substance: IOPROMIDE
     Indication: Computerised tomogram abdomen

REACTIONS (13)
  - Anaphylactic shock [Recovering/Resolving]
  - Depressed level of consciousness [Recovered/Resolved]
  - Unresponsive to stimuli [Recovered/Resolved]
  - Blood pressure decreased [Recovering/Resolving]
  - Sneezing [None]
  - Cough [None]
  - Nausea [None]
  - Vomiting [None]
  - Hyporesponsive to stimuli [Recovered/Resolved]
  - Thirst [None]
  - Heart rate decreased [Recovered/Resolved]
  - Heart rate decreased [None]
  - Heart rate increased [Recovered/Resolved]

NARRATIVE: CASE EVENT DATE: 20240527
